FAERS Safety Report 5128495-9 (Version None)
Quarter: 2006Q4

REPORT INFORMATION
  Report Type: 
  Country: None (occurrence: None)
  Receive Date: 20061017
  Receipt Date: 20061005
  Transmission Date: 20070319
  Serious: Yes (Other)
  Sender: FDA-Public Use
  Company Number: PL-BAYER-200614458GDS

PATIENT
  Age: 72 Year
  Sex: Male
  Weight: 57 kg

DRUGS (7)
  1. SORAFENIB [Suspect]
     Indication: RENAL CELL CARCINOMA STAGE UNSPECIFIED
     Dosage: TOTAL DAILY DOSE: 800 MG
     Route: 048
  2. SPIRONOL [Concomitant]
     Indication: HYPERTENSION
     Route: 048
     Dates: start: 20060302
  3. MADOPAR (BENSERAZIDE, LEVODOPA) [Concomitant]
     Indication: PARKINSON'S DISEASE
     Route: 048
     Dates: start: 20060302
  4. REASEC ATROPINE, DIPHENOXYLATE) [Concomitant]
     Indication: DIARRHOEA
     Route: 048
     Dates: start: 20050901
  5. INHIBACE [Concomitant]
     Indication: HYPERTENSION
     Route: 048
     Dates: start: 20060302
  6. AMLODIPINE [Concomitant]
     Indication: HYPERTENSION
     Route: 048
     Dates: start: 20060302
  7. DIURESIN SR (INDAPAMIDE) [Concomitant]
     Indication: HYPERTENSION
     Route: 048
     Dates: start: 20060302

REACTIONS (2)
  - BLOOD CALCIUM DECREASED [None]
  - HYPERNATRAEMIA [None]
